FAERS Safety Report 6387611-1 (Version None)
Quarter: 2009Q4

REPORT INFORMATION
  Report Type: 
  Country: None (occurrence: None)
  Receive Date: 20091005
  Receipt Date: 20091001
  Transmission Date: 20100525
  Serious: Yes (Death, Hospitalization)
  Sender: FDA-Public Use
  Company Number: ES-JNJFOC-20091000401

PATIENT
  Age: 85 Year
  Sex: Female

DRUGS (12)
  1. DURAGESIC-100 [Suspect]
     Route: 062
  2. DURAGESIC-100 [Suspect]
     Indication: POST HERPETIC NEURALGIA
     Route: 062
  3. MOTILIUM [Suspect]
     Indication: DRUG USE FOR UNKNOWN INDICATION
  4. NEURONTIN [Suspect]
     Route: 048
  5. NEURONTIN [Suspect]
     Indication: POST HERPETIC NEURALGIA
     Route: 048
  6. DIGOXIN [Concomitant]
     Indication: CARDIAC FAILURE
  7. VENLAFAXINE [Concomitant]
     Indication: DRUG USE FOR UNKNOWN INDICATION
  8. NULYTELY [Concomitant]
     Indication: DRUG USE FOR UNKNOWN INDICATION
  9. NOLOTIL [Concomitant]
     Indication: OSTEOARTHRITIS
  10. SEGURIL [Concomitant]
     Indication: CARDIAC FAILURE
     Route: 048
  11. SEVREDOL [Concomitant]
     Indication: DRUG USE FOR UNKNOWN INDICATION
  12. SINTROM [Concomitant]
     Indication: ATRIAL FIBRILLATION

REACTIONS (6)
  - CARDIAC ASTHMA [None]
  - CARDIAC FAILURE CONGESTIVE [None]
  - DELIRIUM [None]
  - DISORIENTATION [None]
  - DYSPNOEA [None]
  - RENAL FAILURE [None]
